FAERS Safety Report 5025946-5 (Version None)
Quarter: 2006Q2

REPORT INFORMATION
  Report Type: 
  Country: None (occurrence: None)
  Receive Date: 20060614
  Receipt Date: 20060608
  Transmission Date: 20061013
  Serious: Yes (Other)
  Sender: FDA-Public Use
  Company Number: CH-GLAXOSMITHKLINE-B0427397A

PATIENT
  Age: 26 Year
  Sex: Female

DRUGS (2)
  1. VALTREX [Suspect]
     Dosage: 500MG TWICE PER DAY
     Route: 048
     Dates: start: 20060504, end: 20060505
  2. FAMVIR [Concomitant]
     Route: 048
     Dates: start: 20060508

REACTIONS (1)
  - MENINGITIS [None]
